FAERS Safety Report 8539384-1 (Version None)
Quarter: 2012Q3

REPORT INFORMATION
  Report Type: 
  Country: None (occurrence: None)
  Receive Date: 20120726
  Receipt Date: 20120724
  Transmission Date: 20120928
  Serious: Yes (Hospitalization)
  Sender: FDA-Public Use
  Company Number: FR-SANOFI-AVENTIS-2012SA052324

PATIENT
  Age: 47 Year
  Sex: Male

DRUGS (8)
  1. ALDACTONE [Suspect]
     Route: 048
     Dates: end: 20120701
  2. LASIX [Suspect]
     Route: 048
     Dates: end: 20120701
  3. PROCORALAN [Suspect]
     Route: 048
     Dates: end: 20120701
  4. COROTROPE [Suspect]
     Indication: EJECTION FRACTION DECREASED
     Route: 042
     Dates: start: 20120606, end: 20120701
  5. ACETAMINOPHEN AND TRAMADOL HCL [Suspect]
     Indication: PAIN
     Route: 048
     Dates: end: 20120701
  6. DOBUTAMINE HCL [Suspect]
     Indication: EJECTION FRACTION DECREASED
     Route: 048
     Dates: start: 20120606
  7. IMOVANE [Suspect]
     Route: 048
     Dates: end: 20120701
  8. BISOPROLOL FUMARATE [Suspect]
     Route: 048
     Dates: end: 20120701

REACTIONS (1)
  - EOSINOPHILIC MYOCARDITIS [None]
